FAERS Safety Report 19464592 (Version 3)
Quarter: 2022Q1

REPORT INFORMATION
  Report Type: Report from Study
  Country: PE (occurrence: PE)
  Receive Date: 20210626
  Receipt Date: 20220321
  Transmission Date: 20220424
  Serious: Yes (Hospitalization)
  Sender: FDA-Public Use
  Company Number: PE-NOVARTISPH-NVSC2021PE130788

PATIENT
  Age: 44 Year
  Sex: Male

DRUGS (2)
  1. TASIGNA [Suspect]
     Active Substance: NILOTINIB
     Indication: Chronic myeloid leukaemia
     Dosage: 800 MG, QD
     Route: 048
     Dates: start: 20200115
  2. TASIGNA [Suspect]
     Active Substance: NILOTINIB
     Dosage: 400 MG, BID (ORAL BY MOUTH)
     Route: 048
     Dates: start: 20200115

REACTIONS (4)
  - COVID-19 [Recovering/Resolving]
  - Inappropriate schedule of product administration [Unknown]
  - Rash pruritic [Unknown]
  - Agitation [Unknown]

NARRATIVE: CASE EVENT DATE: 20200115
